FAERS Safety Report 10242006 (Version 1)
Quarter: 2014Q1

REPORT INFORMATION
  Report Type: Spontaneous
  Country: US (occurrence: None)
  Receive Date: 20140306
  Receipt Date: 20140306
  Transmission Date: 20141002
  Serious: Yes (Other)
  Sender: FDA-Public Use
  Company Number: 163-21880-13124694

PATIENT
  Age: 59 Year
  Sex: Male
  Weight: 101.15 kg

DRUGS (14)
  1. REVLIMID (LENALIDOMIDE) (10 MILLIGRAM, CAPSULES) [Suspect]
     Indication: PLASMA CELL MYELOMA
     Route: 048
     Dates: start: 201211, end: 20130703
  2. FAMOTIDINE (FAMOTIDINE) (UNKNOWN) [Concomitant]
  3. MAGNESIUM (MAGNESIUM) (UNKNOWN) [Concomitant]
  4. METFORMIN (METFORMIN) (UNKNOWN) [Concomitant]
  5. SIMVASTATIN (SIMVASTATIN) (UNKNOWN) [Concomitant]
  6. LISINOPRIL (LISINOPRIL) (UNKNOWN) [Concomitant]
  7. GABAPENTIN (GABAPENTIN) (UNKNOWN) (GABAPENTIN) [Concomitant]
  8. GLIPIZIDE (GLIPIZIDE) (UNKNOWN) [Concomitant]
  9. GLIPIZIDE (GLIPIZIDE) (UNKNOWN) [Concomitant]
  10. DEXAMETHASONE (DEXAMETHASONE) (UNKNOWN) [Concomitant]
  11. PANTOPRAZOLE (PANTOPRAZOLE) (UNKNOWN) [Concomitant]
  12. HYDROMORPHONE (HYDROMORPHONE) (UNKNOWN) (HYDROMORPHONE) [Concomitant]
  13. ASPIRIN (ACETYLSALICYLIC ACID) (UNKNOWN) (ACETYLSALICYLIC ACID) [Concomitant]
  14. HYDROCODONE (HYDROCODONE) (UNKNOWN) [Concomitant]

REACTIONS (1)
  - Pancytopenia [None]
